FAERS Safety Report 20653002 (Version 1)
Quarter: 2022Q1

REPORT INFORMATION
  Report Type: Spontaneous
  Country: IT (occurrence: IT)
  Receive Date: 20220330
  Receipt Date: 20220330
  Transmission Date: 20220423
  Serious: Yes (Hospitalization, Other)
  Sender: FDA-Public Use
  Company Number: None

PATIENT
  Age: 49 Year
  Sex: Male

DRUGS (3)
  1. DICLOFENAC [Suspect]
     Active Substance: DICLOFENAC
     Indication: Arthralgia
     Dosage: 250 MG
     Route: 048
     Dates: start: 20220305, end: 20220307
  2. IBUPROFEN [Suspect]
     Active Substance: IBUPROFEN
     Indication: Arthralgia
     Dosage: 3.6 G
     Route: 048
     Dates: start: 20220304, end: 20220307
  3. TACHIPIRINA [Suspect]
     Active Substance: ACETAMINOPHEN
     Indication: Arthralgia
     Dosage: 2 G
     Route: 048
     Dates: start: 20220304, end: 20220304

REACTIONS (5)
  - Hyperbilirubinaemia [Recovering/Resolving]
  - Hypertransaminasaemia [Recovering/Resolving]
  - Jaundice [Recovering/Resolving]
  - Acute hepatic failure [Recovering/Resolving]
  - Substance abuse [Recovering/Resolving]

NARRATIVE: CASE EVENT DATE: 20220312
